FAERS Safety Report 11203101 (Version 2)
Quarter: 2015Q3

REPORT INFORMATION
  Report Type: Spontaneous
  Country: US (occurrence: US)
  Receive Date: 20150619
  Receipt Date: 20150901
  Transmission Date: 20151125
  Serious: Yes (Other)
  Sender: FDA-Public Use
  Company Number: US-JNJFOC-20150608355

PATIENT
  Sex: Male

DRUGS (5)
  1. LISINOPRIL. [Concomitant]
     Active Substance: LISINOPRIL
  2. LASIX [Concomitant]
     Active Substance: FUROSEMIDE
  3. IMBRUVICA [Suspect]
     Active Substance: IBRUTINIB
     Indication: LYMPHOMA
     Route: 048
     Dates: start: 20140927, end: 20150519
  4. IMBRUVICA [Suspect]
     Active Substance: IBRUTINIB
     Indication: LYMPHOMA
     Route: 048
     Dates: start: 2015
  5. PLAVIX [Concomitant]
     Active Substance: CLOPIDOGREL BISULFATE

REACTIONS (3)
  - Coronary artery occlusion [Unknown]
  - Bronchitis [Unknown]
  - Dyspepsia [Unknown]

NARRATIVE: CASE EVENT DATE: 2015
